FAERS Safety Report 6743953-9 (Version None)
Quarter: 2010Q2

REPORT INFORMATION
  Report Type: 
  Country: None (occurrence: None)
  Receive Date: 20100527
  Receipt Date: 20100427
  Transmission Date: 20101027
  Serious: Yes (Other)
  Sender: FDA-Public Use
  Company Number: CH-SHIRE-SPV1-2010-00873

PATIENT

DRUGS (4)
  1. MIDON [Suspect]
     Dosage: 10 MG, 3X/DAY:TID
     Route: 048
     Dates: end: 20100407
  2. INSULIN [Concomitant]
     Dosage: 40MG DAILY
     Route: 058
  3. OMEPRAZOLE [Concomitant]
     Dosage: 40 MG, 1X/DAY:QD
     Route: 048
  4. CHOLECALCIFEROL [Concomitant]
     Dosage: UNK, UNK
     Route: 048

REACTIONS (1)
  - ELECTROCARDIOGRAM QT INTERVAL ABNORMAL [None]
